FAERS Safety Report 5838953-7 (Version None)
Quarter: 2008Q3

REPORT INFORMATION
  Report Type: 
  Country: None (occurrence: None)
  Receive Date: 20080808
  Receipt Date: 20080806
  Transmission Date: 20090109
  Serious: Yes (Death, Other)
  Sender: FDA-Public Use
  Company Number: PHHY2008CA16880

PATIENT
  Sex: Female

DRUGS (2)
  1. DIOVAN [Suspect]
     Indication: HYPERTENSION
     Dosage: 160 MG, UNK
  2. CALCIUM CHANNEL BLOCKERS [Concomitant]

REACTIONS (2)
  - ABDOMINAL OPERATION [None]
  - POST PROCEDURAL COMPLICATION [None]
